FAERS Safety Report 5144317-4 (Version None)
Quarter: 2006Q4

REPORT INFORMATION
  Report Type: 
  Country: None (occurrence: None)
  Receive Date: 20061030
  Receipt Date: 20061019
  Transmission Date: 20070319
  Serious: Yes (Life-Threatening)
  Sender: FDA-Public Use
  Company Number: 060182

PATIENT
  Age: 56 Year
  Sex: Male

DRUGS (6)
  1. GOLYTELY [Suspect]
     Indication: COLONOSCOPY
     Dosage: 4 L, PO
     Route: 048
     Dates: start: 20060918
  2. HYDROCHLOROTHIAZIDE [Concomitant]
  3. IRBESARTAN [Concomitant]
  4. NITROGLYCERIN [Concomitant]
  5. GEMFIBROZIL [Concomitant]
  6. ATORVASTATIN CALCIUM [Concomitant]

REACTIONS (5)
  - BLISTER [None]
  - HYPERSENSITIVITY [None]
  - HYPOTENSION [None]
  - JOINT SWELLING [None]
  - MYOCARDIAL INFARCTION [None]
